FAERS Safety Report 7003521-0 (Version None)
Quarter: 2010Q3

REPORT INFORMATION
  Report Type: 
  Country: None (occurrence: None)
  Receive Date: 20100916
  Receipt Date: 20100816
  Transmission Date: 20110219
  Serious: No
  Sender: FDA-Public Use
  Company Number: 018607

PATIENT

DRUGS (3)
  1. VIMPAT [Suspect]
     Dates: start: 20100101
  2. LAMOTRIGINE [Concomitant]
  3. VALPROATE SODIUM [Concomitant]

REACTIONS (1)
  - ASPHYXIA [None]
